FAERS Safety Report 18050885 (Version 6)
Quarter: 2020Q4

REPORT INFORMATION
  Report Type: Spontaneous
  Country: US (occurrence: US)
  Receive Date: 20200721
  Receipt Date: 20201207
  Transmission Date: 20210113
  Serious: No
  Sender: FDA-Public Use
  Company Number: US-PFIZER INC-2020277690

PATIENT
  Age: 65 Year
  Sex: Female

DRUGS (2)
  1. IBRANCE [Suspect]
     Active Substance: PALBOCICLIB
     Indication: BREAST CANCER FEMALE
     Dosage: 100 MG, CYCLIC (EVERYDAY FOR  21 DAYS)
     Dates: start: 20200208, end: 202002
  2. IBRANCE [Suspect]
     Active Substance: PALBOCICLIB
     Dosage: 100 MG, CYCLIC (100 MG, EVERYDAY FOR 21 DAYS FOLLOWED BY 7 DAYS OFF EVERY 28 DAY CYCLE)
     Route: 048
     Dates: start: 20200210, end: 2020

REACTIONS (6)
  - Feeling abnormal [Unknown]
  - Asthenia [Unknown]
  - Platelet count decreased [Unknown]
  - Nausea [Unknown]
  - White blood cell count decreased [Not Recovered/Not Resolved]
  - Neoplasm progression [Unknown]
